FAERS Safety Report 12709302 (Version 1)
Quarter: 2016Q3

REPORT INFORMATION
  Report Type: Spontaneous
  Country: US (occurrence: None)
  Receive Date: 20160901
  Receipt Date: 20160901
  Transmission Date: 20161109
  Serious: Yes (Other)
  Sender: FDA-Public Use
  Company Number: None

PATIENT
  Age: 70 Year
  Sex: Female

DRUGS (2)
  1. LEVOTHYROXINE. [Concomitant]
     Active Substance: LEVOTHYROXINE
  2. CARVEDILOL, 6.25MG [Suspect]
     Active Substance: CARVEDILOL

REACTIONS (6)
  - Pallor [None]
  - Pulse abnormal [None]
  - Depressed level of consciousness [None]
  - Cold sweat [None]
  - Feeling abnormal [None]
  - Blood pressure decreased [None]

NARRATIVE: CASE EVENT DATE: 20160831
